FAERS Safety Report 5252149-1 (Version None)
Quarter: 2007Q1

REPORT INFORMATION
  Report Type: 
  Country: None (occurrence: None)
  Receive Date: 20070227
  Receipt Date: 20070215
  Transmission Date: 20070707
  Serious: Yes (Death)
  Sender: FDA-Public Use
  Company Number: 2007-00324

PATIENT
  Age: 75 Year
  Sex: Female
  Weight: 43.5 kg

DRUGS (6)
  1. VELCADE [Suspect]
     Indication: MULTIPLE MYELOMA
     Dosage: 1.30 MG/M2, INTRAVENOUS
     Route: 042
     Dates: start: 20060824, end: 20060827
  2. DEXAMETHASONE [Concomitant]
  3. LASIX [Concomitant]
  4. ALDACTONE [Concomitant]
  5. ULTRACET (PARACETAMOL, TRAMADOL HYDROCHLORIDE) TABLET [Concomitant]
  6. ENALAPRIL MALEATE [Concomitant]

REACTIONS (10)
  - BLOOD PRESSURE DECREASED [None]
  - CARDIAC ARREST [None]
  - ECHOCARDIOGRAM ABNORMAL [None]
  - HEART RATE DECREASED [None]
  - LOSS OF PROPRIOCEPTION [None]
  - PULMONARY HYPERTENSION [None]
  - SOMNOLENCE [None]
  - SUPRAVENTRICULAR TACHYCARDIA [None]
  - TRICUSPID VALVE INCOMPETENCE [None]
  - VENTRICULAR HYPERTROPHY [None]
